FAERS Safety Report 21161845 (Version 1)
Quarter: 2022Q3

REPORT INFORMATION
  Report Type: Spontaneous
  Country: US (occurrence: None)
  Receive Date: 20220802
  Receipt Date: 20220802
  Transmission Date: 20221027
  Serious: Yes (Hospitalization)
  Sender: FDA-Public Use
  Company Number: None

PATIENT
  Age: 64 Year
  Sex: Female
  Weight: 123.75 kg

DRUGS (1)
  1. OZEMPIC [Suspect]
     Active Substance: SEMAGLUTIDE
     Indication: Drug therapy
     Dates: start: 20220411

REACTIONS (6)
  - Glycosylated haemoglobin increased [None]
  - Abdominal pain [None]
  - Pancreatitis [None]
  - Colitis [None]
  - Ascites [None]
  - Drug hypersensitivity [None]

NARRATIVE: CASE EVENT DATE: 20220420
